FAERS Safety Report 8739686 (Version 2)
Quarter: 2013Q2

REPORT INFORMATION
  Report Type: Spontaneous
  Country: SE (occurrence: SE)
  Receive Date: 20120823
  Receipt Date: 20130606
  Transmission Date: 20140414
  Serious: Yes (Hospitalization)
  Sender: FDA-Public Use
  Company Number: SE-B.I. PHARMACEUTICALS,INC./RIDGEFIELD-2012-SW-00622SW

PATIENT
  Age: 76 Year
  Sex: Female

DRUGS (5)
  1. PRADAXA [Suspect]
     Indication: ATRIAL FIBRILLATION
     Dosage: 300 MG
     Dates: start: 20120123
  2. PRADAXA [Suspect]
  3. NORVASC [Concomitant]
     Dosage: 5 MG
  4. CENTYL K MITE [Concomitant]
     Dosage: DAILY DOSE: 1X1
  5. DIKLOFENAC [Concomitant]
     Dosage: 100 MG

REACTIONS (1)
  - Transient ischaemic attack [Not Recovered/Not Resolved]
